FAERS Safety Report 23482854 (Version 1)
Quarter: 2024Q1

REPORT INFORMATION
  Report Type: Other
  Country: CH (occurrence: CH)
  Receive Date: 20240205
  Receipt Date: 20240205
  Transmission Date: 20240410
  Serious: Yes (Hospitalization, Other)
  Sender: FDA-Public Use
  Company Number: CH-Merck Healthcare KGaA-2024004878

PATIENT
  Age: 69 Year
  Sex: Male

DRUGS (6)
  1. METFORMIN [Suspect]
     Active Substance: METFORMIN HYDROCHLORIDE
     Indication: Type 2 diabetes mellitus
  2. PREDNISONE [Suspect]
     Active Substance: PREDNISONE
     Indication: Sjogren^s syndrome
  3. HYDROCHLOROTHIAZIDE\RAMIPRIL [Concomitant]
     Active Substance: HYDROCHLOROTHIAZIDE\RAMIPRIL
     Indication: Product used for unknown indication
  4. PANTOPRAZOLE [Concomitant]
     Active Substance: PANTOPRAZOLE
     Indication: Product used for unknown indication
  5. SULFASALAZINE [Concomitant]
     Active Substance: SULFASALAZINE
     Indication: Product used for unknown indication
  6. ROSUVASTATIN [Concomitant]
     Active Substance: ROSUVASTATIN
     Indication: Product used for unknown indication

REACTIONS (7)
  - Diabetic ketoacidosis [Recovering/Resolving]
  - Acute kidney injury [Recovering/Resolving]
  - Arthritis salmonella [Recovering/Resolving]
  - Fall [Recovering/Resolving]
  - Soft tissue infection [Recovering/Resolving]
  - Intervertebral discitis [Recovering/Resolving]
  - Blood lactic acid increased [Unknown]
